FAERS Safety Report 19776730 (Version 1)
Quarter: 2021Q3

REPORT INFORMATION
  Report Type: Spontaneous
  Country: US (occurrence: US)
  Receive Date: 20210902
  Receipt Date: 20210902
  Transmission Date: 20211014
  Serious: Yes (Other)
  Sender: FDA-Public Use
  Company Number: US-LUPIN PHARMACEUTICALS INC.-2021-16258

PATIENT
  Age: 85 Year
  Sex: Male

DRUGS (1)
  1. ALBUTEROL SULFATE INHALATION AEROSOL, 90 MCG/ACTUATION [Suspect]
     Active Substance: ALBUTEROL SULFATE
     Indication: PRODUCT USED FOR UNKNOWN INDICATION
     Dosage: UNK, 2 PUFFS Q4 HOURS FOR 1?3 DAYS
     Dates: start: 2021

REACTIONS (2)
  - Pneumonia [Unknown]
  - Device ineffective [Unknown]

NARRATIVE: CASE EVENT DATE: 2021
